FAERS Safety Report 25384259 (Version 2)
Quarter: 2025Q3

REPORT INFORMATION
  Report Type: Spontaneous
  Country: CN (occurrence: CN)
  Receive Date: 20250602
  Receipt Date: 20250802
  Transmission Date: 20251020
  Serious: Yes (Other)
  Sender: ALEXION PHARMACEUTICALS
  Company Number: CN-ASTRAZENECA-202505CHN023520CN

PATIENT
  Age: 78 Year
  Sex: Female
  Weight: 70 kg

DRUGS (2)
  1. SYMBICORT [Suspect]
     Active Substance: BUDESONIDE\FORMOTEROL FUMARATE DIHYDRATE
     Indication: Inflammation
     Dosage: 1 MICROLITER, TID
     Dates: start: 20250521, end: 20250522
  2. SYMBICORT [Suspect]
     Active Substance: BUDESONIDE\FORMOTEROL FUMARATE DIHYDRATE
     Indication: Dyspnoea

REACTIONS (4)
  - Chest discomfort [Recovering/Resolving]
  - Laryngeal discomfort [Unknown]
  - Orthopnoea [Unknown]
  - Breath holding [Unknown]

NARRATIVE: CASE EVENT DATE: 20250522
